FAERS Safety Report 24856762 (Version 1)
Quarter: 2025Q1

REPORT INFORMATION
  Report Type: Other
  Country: FR (occurrence: FR)
  Receive Date: 20250117
  Receipt Date: 20250117
  Transmission Date: 20250408
  Serious: Yes (Hospitalization)
  Sender: INCYTE
  Company Number: None

PATIENT

DRUGS (2)
  1. RUXOLITINIB [Suspect]
     Active Substance: RUXOLITINIB
     Indication: Myelofibrosis
     Dosage: 1 DOSAGE FORM, Q12H
     Route: 048
     Dates: start: 20170118
  2. ANAGRELIDE HYDROCHLORIDE [Suspect]
     Active Substance: ANAGRELIDE HYDROCHLORIDE
     Indication: Myelofibrosis
     Dosage: 1 DOSAGE FORM, Q12H
     Route: 048
     Dates: start: 20040108

REACTIONS (1)
  - Langerhans^ cell histiocytosis [Not Recovered/Not Resolved]

NARRATIVE: CASE EVENT DATE: 20240103
